FAERS Safety Report 25276338 (Version 2)
Quarter: 2025Q2

REPORT INFORMATION
  Report Type: Spontaneous
  Country: US (occurrence: US)
  Receive Date: 20250507
  Receipt Date: 20250509
  Transmission Date: 20250717
  Serious: Yes (Disabling)
  Sender: SANOFI AVENTIS
  Company Number: US-SANOFI-02501250

PATIENT
  Age: 71 Year
  Sex: Male

DRUGS (3)
  1. LANTUS SOLOSTAR [Suspect]
     Active Substance: INSULIN GLARGINE
     Indication: Type 2 diabetes mellitus
     Dosage: 45 IU, QD
     Dates: start: 202202
  2. HUMALOG [Concomitant]
     Active Substance: INSULIN LISPRO
  3. NOVOLOG [Concomitant]
     Active Substance: INSULIN ASPART

REACTIONS (2)
  - Bedridden [Unknown]
  - Incontinence [Unknown]
